FAERS Safety Report 4588805-8 (Version None)
Quarter: 2005Q1

REPORT INFORMATION
  Report Type: 
  Country: None (occurrence: None)
  Receive Date: 20050216
  Receipt Date: 20050131
  Transmission Date: 20050727
  Serious: No
  Sender: FDA-Public Use
  Company Number: USA050188275

PATIENT
  Age: 28 Year
  Sex: Male

DRUGS (4)
  1. STRATTERA [Suspect]
     Indication: ATTENTION DEFICIT/HYPERACTIVITY DISORDER
     Dosage: 80 MG DAY
  2. HUMALOG [Concomitant]
  3. CONCERTA [Concomitant]
  4. LANTUS [Concomitant]

REACTIONS (15)
  - BILIRUBIN CONJUGATED INCREASED [None]
  - BLOOD BILIRUBIN INCREASED [None]
  - BLOOD BILIRUBIN UNCONJUGATED INCREASED [None]
  - CHROMATURIA [None]
  - DECREASED APPETITE [None]
  - DRY MOUTH [None]
  - EMOTIONAL DISORDER [None]
  - FEELING COLD [None]
  - NAUSEA [None]
  - RELATIONSHIP BREAKDOWN [None]
  - RETROGRADE EJACULATION [None]
  - SENSORY DISTURBANCE [None]
  - TESTICULAR RETRACTION [None]
  - URINARY HESITATION [None]
  - URINARY RETENTION [None]
